FAERS Safety Report 6341131-9 (Version None)
Quarter: 2009Q3

REPORT INFORMATION
  Report Type: 
  Country: None (occurrence: None)
  Receive Date: 20090904
  Receipt Date: 20090128
  Transmission Date: 20100115
  Serious: No
  Sender: FDA-Public Use
  Company Number: A0765681A

PATIENT
  Age: 34 Year
  Sex: Female

DRUGS (7)
  1. REQUIP [Suspect]
     Indication: RESTLESS LEGS SYNDROME
     Dosage: .25MG PER DAY
     Dates: start: 20090127
  2. BENICAR [Concomitant]
  3. TOPAMAX [Concomitant]
  4. REGLAN [Concomitant]
  5. REMERON [Concomitant]
  6. XANAX [Concomitant]
  7. DOXEPIN HCL [Concomitant]

REACTIONS (1)
  - BLOOD PRESSURE INCREASED [None]
